FAERS Safety Report 9518090 (Version 1)
Quarter: 2013Q3

REPORT INFORMATION
  Report Type: Spontaneous
  Country: US (occurrence: None)
  Receive Date: 20130910
  Receipt Date: 20130910
  Transmission Date: 20140515
  Serious: Yes (Life-Threatening, Other)
  Sender: FDA-Public Use
  Company Number: None

PATIENT
  Sex: 0

DRUGS (1)
  1. CYMBALTA [Suspect]
     Indication: PAIN
     Dates: start: 20121231, end: 20130909

REACTIONS (4)
  - Depression [None]
  - Panic attack [None]
  - Insomnia [None]
  - Quality of life decreased [None]
